FAERS Safety Report 21696962 (Version 1)
Quarter: 2022Q4

REPORT INFORMATION
  Report Type: Report from Study
  Country: US (occurrence: US)
  Receive Date: 20221208
  Receipt Date: 20221208
  Transmission Date: 20230113
  Serious: Yes (Other)
  Sender: FDA-Public Use
  Company Number: US-ABBVIE-4227272

PATIENT
  Sex: Female

DRUGS (2)
  1. RINVOQ [Suspect]
     Active Substance: UPADACITINIB
     Indication: Product used for unknown indication
     Dosage: STRENGTH: 15 MILLIGRAM
     Route: 048
  2. Covid-19 vaccine [Concomitant]
     Indication: COVID-19 immunisation

REACTIONS (3)
  - Lung cancer metastatic [Recovered/Resolved]
  - Diabetes mellitus [Recovering/Resolving]
  - Central nervous system lesion [Recovered/Resolved]
